FAERS Safety Report 13324891 (Version 3)
Quarter: 2017Q2

REPORT INFORMATION
  Report Type: Spontaneous
  Country: US (occurrence: US)
  Receive Date: 20170310
  Receipt Date: 20170407
  Transmission Date: 20170830
  Serious: Yes (Other)
  Sender: FDA-Public Use
  Company Number: US-SAOL THERAPEUTICS-0700657566

PATIENT
  Age: 65 Year
  Sex: Female

DRUGS (22)
  1. LIORESAL [Suspect]
     Active Substance: BACLOFEN
     Indication: MULTIPLE SCLEROSIS
     Dosage: 145.75 ?G, \DAY
     Route: 037
     Dates: start: 20140606
  2. LIORESAL [Suspect]
     Active Substance: BACLOFEN
     Indication: MUSCLE SPASTICITY
     Dosage: 210.55 ?G \DAY
     Route: 037
  3. GABLOFEN [Suspect]
     Active Substance: BACLOFEN
     Dosage: 119.94 ?G, \DAY
     Route: 037
  4. CYMBALTA [Concomitant]
     Active Substance: DULOXETINE HYDROCHLORIDE
     Dosage: 60 MG, 1X/DAY
  5. LIORESAL [Suspect]
     Active Substance: BACLOFEN
     Dosage: 100 ?G, \DAY
     Route: 037
  6. CALCIUM 500 + D3 [Concomitant]
     Dosage: 1 DOSAGE UNITS, 1X/DAY
     Route: 048
  7. BACLOFEN. [Concomitant]
     Active Substance: BACLOFEN
     Dosage: 10 MG, 3X/DAY
     Route: 048
  8. LIORESAL [Suspect]
     Active Substance: BACLOFEN
     Dosage: 188.10 ?G, \DAY
     Route: 037
     Dates: start: 20160209
  9. LIORESAL [Suspect]
     Active Substance: BACLOFEN
     Dosage: 210.55 ?G, \DAY
     Route: 037
     Dates: start: 20170217
  10. GABLOFEN [Suspect]
     Active Substance: BACLOFEN
     Dosage: 210.55 ?G, \DAY
     Route: 037
  11. ASPIRIN. [Concomitant]
     Active Substance: ASPIRIN
  12. LINZESS [Concomitant]
     Active Substance: LINACLOTIDE
  13. NUVIGIL [Concomitant]
     Active Substance: ARMODAFINIL
  14. MODAFINIL. [Concomitant]
     Active Substance: MODAFINIL
     Dosage: 200 MG, 1X/DAY
     Route: 048
  15. BLACK COHOSH ROOT [Concomitant]
  16. CALCIUM [Concomitant]
     Active Substance: CALCIUM
  17. MULTIVITAMIN [Concomitant]
     Active Substance: VITAMINS
     Dosage: 1 CAPSULES, 1X/DAY
     Route: 048
  18. VITAMIN D [Concomitant]
     Active Substance: CHOLECALCIFEROL
     Dosage: 5000 IU, 1X/DAY
     Route: 048
  19. BACLOFEN. [Suspect]
     Active Substance: BACLOFEN
     Indication: MULTIPLE SCLEROSIS
     Dosage: 145.76 ?G, \DAY
     Route: 037
     Dates: end: 20140606
  20. BACLOFEN. [Suspect]
     Active Substance: BACLOFEN
     Indication: MUSCLE SPASTICITY
  21. GABAPENTIN. [Concomitant]
     Active Substance: GABAPENTIN
  22. IRON [Concomitant]
     Active Substance: IRON
     Dosage: 47.5 MG, 1X/DAY

REACTIONS (36)
  - Headache [Unknown]
  - Unevaluable event [Unknown]
  - Lethargy [Unknown]
  - Anal incontinence [Unknown]
  - Altered state of consciousness [Unknown]
  - Depressed mood [Unknown]
  - Hypersomnia [Unknown]
  - Arachnoid cyst [Unknown]
  - Diarrhoea [Unknown]
  - Cerebral ventricle dilatation [Unknown]
  - Memory impairment [Not Recovered/Not Resolved]
  - Mood swings [Unknown]
  - Vomiting [Unknown]
  - Transient ischaemic attack [Unknown]
  - Incoherent [Unknown]
  - Device kink [Recovered/Resolved]
  - Meningitis chemical [Unknown]
  - Hypotonia [Unknown]
  - Pain [Not Recovered/Not Resolved]
  - Nonspecific reaction [Unknown]
  - Normal pressure hydrocephalus [Unknown]
  - Gait disturbance [Unknown]
  - Feeling cold [Unknown]
  - Constipation [Unknown]
  - Nausea [Unknown]
  - Urinary incontinence [Unknown]
  - Device infusion issue [Unknown]
  - Muscle spasms [Not Recovered/Not Resolved]
  - Weight increased [Unknown]
  - Device alarm issue [Unknown]
  - Arachnoiditis [Unknown]
  - Overdose [Unknown]
  - Tethered cord syndrome [Unknown]
  - Post lumbar puncture syndrome [Not Recovered/Not Resolved]
  - Malaise [Unknown]
  - Increased appetite [Unknown]

NARRATIVE: CASE EVENT DATE: 2009
